FAERS Safety Report 15209094 (Version 1)
Quarter: 2018Q3

REPORT INFORMATION
  Report Type: Spontaneous
  Country: US (occurrence: US)
  Receive Date: 20180727
  Receipt Date: 20180727
  Transmission Date: 20181010
  Serious: No
  Sender: FDA-Public Use
  Company Number: US-BRACCO-2018US02961

PATIENT
  Age: 47 Year
  Sex: Female

DRUGS (1)
  1. VOLUMEN [Suspect]
     Active Substance: BARIUM SULFATE
     Indication: COMPUTERISED TOMOGRAM
     Dosage: 1350 ML, SINGLE

REACTIONS (1)
  - Throat irritation [Recovered/Resolved]
